FAERS Safety Report 9867103 (Version 1)
Quarter: 2014Q1

REPORT INFORMATION
  Report Type: Report from Study
  Country: US (occurrence: US)
  Receive Date: 20140204
  Receipt Date: 20140204
  Transmission Date: 20141002
  Serious: Yes (Other)
  Sender: FDA-Public Use
  Company Number: US-ROCHE-1338524

PATIENT
  Sex: Male
  Weight: 90.9 kg

DRUGS (3)
  1. SOMATROPIN [Suspect]
     Indication: GROWTH HORMONE DEFICIENCY
     Route: 058
  2. NASONEX [Concomitant]
     Dosage: PRN
     Route: 045
  3. ALBUTEROL [Concomitant]
     Dosage: PRN
     Route: 065

REACTIONS (6)
  - Asthenia [Unknown]
  - Lethargy [Unknown]
  - Learning disability [Unknown]
  - Cognitive disorder [Unknown]
  - Hyperlipidaemia [Unknown]
  - Convulsion [Unknown]
